FAERS Safety Report 10142099 (Version 2)
Quarter: 2014Q2

REPORT INFORMATION
  Report Type: Spontaneous
  Country: US (occurrence: US)
  Receive Date: 20140429
  Receipt Date: 20140528
  Transmission Date: 20141212
  Serious: Yes (Death, Hospitalization)
  Sender: FDA-Public Use
  Company Number: US-ACTELION-A-US2014-97827

PATIENT
  Age: 79 Year
  Sex: Female

DRUGS (3)
  1. TRACLEER [Suspect]
     Indication: PULMONARY ARTERIAL HYPERTENSION
     Dosage: UNK
     Route: 048
     Dates: end: 20140413
  2. LASIX [Concomitant]
     Dosage: 40 MG, UNK
     Route: 048
  3. WARFARIN [Concomitant]
     Dosage: 7.5 MG, UNK
     Route: 048

REACTIONS (3)
  - Gastrointestinal neoplasm [Fatal]
  - Colon operation [Unknown]
  - Rectal haemorrhage [Unknown]
